FAERS Safety Report 17200936 (Version 2)
Quarter: 2020Q1

REPORT INFORMATION
  Report Type: Report from Study
  Country: US (occurrence: US)
  Receive Date: 20191226
  Receipt Date: 20200116
  Transmission Date: 20200409
  Serious: Yes (Hospitalization)
  Sender: FDA-Public Use
  Company Number: US-EISAI MEDICAL RESEARCH-EC-2019-067465

PATIENT
  Age: 58 Year
  Sex: Male
  Weight: 86 kg

DRUGS (23)
  1. LENVIMA [Suspect]
     Active Substance: LENVATINIB
     Route: 048
     Dates: start: 20191218, end: 20191224
  2. BACLOFEN. [Concomitant]
     Active Substance: BACLOFEN
  3. GLIMEPIRIDE. [Concomitant]
     Active Substance: GLIMEPIRIDE
  4. IBUPROFEN. [Concomitant]
     Active Substance: IBUPROFEN
  5. RIOMET [Concomitant]
     Active Substance: METFORMIN HYDROCHLORIDE
  6. FENTANYL. [Concomitant]
     Active Substance: FENTANYL
  7. LENVIMA [Suspect]
     Active Substance: LENVATINIB
     Route: 048
     Dates: end: 20200109
  8. ATORVASTATIN [Concomitant]
     Active Substance: ATORVASTATIN
  9. OMEPRAZOLE. [Concomitant]
     Active Substance: OMEPRAZOLE
  10. TRADJENTA [Concomitant]
     Active Substance: LINAGLIPTIN
  11. CYCLOBENZAPRINE. [Concomitant]
     Active Substance: CYCLOBENZAPRINE
  12. LENVIMA [Suspect]
     Active Substance: LENVATINIB
     Indication: THYROID CANCER
     Route: 048
     Dates: start: 20191210, end: 201912
  13. MORPHINE [Concomitant]
     Active Substance: MORPHINE
  14. OXYCODONE [Concomitant]
     Active Substance: OXYCODONE
  15. POLYETHYLENE GLYCOL [Concomitant]
     Active Substance: POLYETHYLENE GLYCOLS
  16. ASPERCREME LIDOCAINE [Concomitant]
  17. PREDNISONE. [Concomitant]
     Active Substance: PREDNISONE
  18. GABAPENTIN. [Concomitant]
     Active Substance: GABAPENTIN
  19. LEVOTHYROXINE. [Concomitant]
     Active Substance: LEVOTHYROXINE
  20. NARCAN [Concomitant]
     Active Substance: NALOXONE HYDROCHLORIDE
  21. SERTRALINE [Concomitant]
     Active Substance: SERTRALINE HYDROCHLORIDE
  22. DEXAMETHASONE. [Concomitant]
     Active Substance: DEXAMETHASONE
  23. DIAZEPAM. [Concomitant]
     Active Substance: DIAZEPAM

REACTIONS (5)
  - Dysphagia [Unknown]
  - Oesophageal haemorrhage [Unknown]
  - Hiccups [Unknown]
  - Cancer pain [Unknown]
  - Asthenia [Unknown]

NARRATIVE: CASE EVENT DATE: 201912
